FAERS Safety Report 8691090 (Version 2)
Quarter: 2013Q4

REPORT INFORMATION
  Report Type: Spontaneous
  Country: US (occurrence: US)
  Receive Date: 20120730
  Receipt Date: 20131107
  Transmission Date: 20140711
  Serious: Yes (Other)
  Sender: FDA-Public Use
  Company Number: US-009507513-1207USA009853

PATIENT
  Age: 62 Year
  Sex: Female

DRUGS (5)
  1. ZOCOR [Suspect]
     Dosage: 5 MG, UNK
     Route: 048
  2. NORVASC [Suspect]
     Dosage: 10 MG, UNK
     Route: 048
  3. MEDROL [Suspect]
  4. LEVAQUIN [Suspect]
  5. XANAX [Concomitant]

REACTIONS (5)
  - Arteriosclerosis coronary artery [Unknown]
  - Joint swelling [Unknown]
  - Dizziness [Unknown]
  - Transient ischaemic attack [Unknown]
  - Vitamin D decreased [Unknown]
